FAERS Safety Report 7474869-0 (Version None)
Quarter: 2011Q2

REPORT INFORMATION
  Report Type: 
  Country: None (occurrence: None)
  Receive Date: 20110505
  Receipt Date: 20110421
  Transmission Date: 20111010
  Serious: Yes (Disabling, Other)
  Sender: FDA-Public Use
  Company Number: 2011AP000797

PATIENT
  Age: 12 Year
  Sex: Male

DRUGS (4)
  1. RISPERIDONE [Concomitant]
  2. METHYLPHENIDATE HCL [Concomitant]
  3. RISPERIDONE [Suspect]
     Indication: PRODUCT USED FOR UNKNOWN INDICATION
     Dosage: 0.5 MG, PO
     Route: 048
     Dates: start: 20101223, end: 20110216
  4. FLUOXETINE [Concomitant]

REACTIONS (2)
  - INSOMNIA [None]
  - APHAGIA [None]
